FAERS Safety Report 5618609-6 (Version None)
Quarter: 2008Q1

REPORT INFORMATION
  Report Type: 
  Country: None (occurrence: None)
  Receive Date: 20080207
  Receipt Date: 20080123
  Transmission Date: 20080703
  Serious: Yes (Hospitalization)
  Sender: FDA-Public Use
  Company Number: EE-ELI_LILLY_AND_COMPANY-EE200801005011

PATIENT
  Sex: Male

DRUGS (2)
  1. DULOXETINE HYDROCHLORIDE [Suspect]
     Indication: NEURALGIA
     Dosage: 30 MG, DAILY (1/D)
     Route: 048
     Dates: start: 20071211, end: 20080102
  2. TRAMADOL HCL [Suspect]
     Indication: NEURALGIA
     Dosage: 50 MG, DAILY (1/D)
     Route: 048
     Dates: start: 20070522

REACTIONS (1)
  - ATRIAL FLUTTER [None]
